FAERS Safety Report 16244301 (Version 2)
Quarter: 2019Q2

REPORT INFORMATION
  Report Type: Report from Study
  Country: US (occurrence: US)
  Receive Date: 20190426
  Receipt Date: 20190528
  Transmission Date: 20190711
  Serious: Yes (Hospitalization, Other)
  Sender: FDA-Public Use
  Company Number: US-JNJFOC-20190433348

PATIENT
  Sex: Female

DRUGS (2)
  1. INFLIXIMAB [Suspect]
     Active Substance: INFLIXIMAB
     Indication: CROHN^S DISEASE
     Route: 042
  2. STELARA [Suspect]
     Active Substance: USTEKINUMAB
     Indication: CROHN^S DISEASE
     Route: 058

REACTIONS (4)
  - Drug ineffective [Unknown]
  - Crohn^s disease [Unknown]
  - Neuropathy peripheral [Unknown]
  - Psoriasis [Unknown]
